FAERS Safety Report 4822453-7 (Version None)
Quarter: 2005Q4

REPORT INFORMATION
  Report Type: 
  Country: None (occurrence: None)
  Receive Date: 20051103
  Receipt Date: 20051103
  Transmission Date: 20060501
  Serious: Yes (Other)
  Sender: FDA-Public Use
  Company Number: None

PATIENT
  Sex: Male
  Weight: 151.3653 kg

DRUGS (13)
  1. ROSIGLITAZONE [Suspect]
     Indication: DIABETES MELLITUS
  2. INSULIN ASPART [Concomitant]
  3. NPH INSULIN [Concomitant]
  4. TESTOSTERONE [Concomitant]
  5. LIS [Concomitant]
  6. NITROGLYCERIN SL [Concomitant]
  7. FELODIPINE [Concomitant]
  8. FUROSEMIDE [Concomitant]
  9. GE [Concomitant]
  10. SALSALATE [Concomitant]
  11. SIMVASTATIN [Concomitant]
  12. METFORMIN [Concomitant]
  13. ATENOLOL [Concomitant]

REACTIONS (1)
  - FLANK PAIN [None]
